FAERS Safety Report 4444747-X (Version None)
Quarter: 2004Q3

REPORT INFORMATION
  Report Type: 
  Country: None (occurrence: None)
  Receive Date: 20040909
  Receipt Date: 20040907
  Transmission Date: 20050211
  Serious: Yes (Life-Threatening, Hospitalization)
  Sender: FDA-Public Use
  Company Number: IT-BRISTOL-MYERS SQUIBB COMPANY-12693529

PATIENT
  Age: 63 Year
  Sex: Male

DRUGS (13)
  1. CYTOXAN [Suspect]
     Indication: HODGKIN'S DISEASE
     Dates: start: 20040602, end: 20040602
  2. BLENOXANE [Suspect]
     Indication: HODGKIN'S DISEASE
     Dates: start: 20040609, end: 20040609
  3. ETOPOPHOS [Suspect]
     Indication: HODGKIN'S DISEASE
     Dates: start: 20040602, end: 20040602
  4. DARBEPOETIN ALFA [Suspect]
     Indication: ANAEMIA OF MALIGNANT DISEASE
     Route: 058
     Dates: start: 20040601
  5. ADRIAMYCIN PFS [Suspect]
     Indication: HODGKIN'S DISEASE
     Dates: start: 20040602, end: 20040602
  6. PROCARBAZINE HCL [Suspect]
     Indication: HODGKIN'S DISEASE
     Dates: start: 20040602, end: 20040602
  7. PREDNISONE [Suspect]
     Indication: HODGKIN'S DISEASE
     Dates: start: 20040602, end: 20040602
  8. NEUPOGEN [Suspect]
     Indication: HODGKIN'S DISEASE
     Dates: start: 20040609, end: 20040618
  9. ITRACONAZOLE [Concomitant]
  10. INSULIN [Concomitant]
  11. ENALAPRIL [Concomitant]
  12. OMEPRAZOLE [Concomitant]
  13. CIPROFLOXACIN [Concomitant]

REACTIONS (4)
  - DISEASE PROGRESSION [None]
  - HODGKIN'S DISEASE [None]
  - PULMONARY EMBOLISM [None]
  - PYREXIA [None]
